FAERS Safety Report 5430308-2 (Version None)
Quarter: 2007Q3

REPORT INFORMATION
  Report Type: 
  Country: None (occurrence: None)
  Receive Date: 20070830
  Receipt Date: 20070824
  Transmission Date: 20080115
  Serious: Yes (Death, Life-Threatening, Hospitalization, Other)
  Sender: FDA-Public Use
  Company Number: PHHO2007DE10916

PATIENT
  Age: 50 Year
  Sex: Male
  Weight: 72 kg

DRUGS (8)
  1. MYCOPHENOLATE MOFETIL [Suspect]
     Indication: HEART TRANSPLANT
     Dosage: 1 MG, BID
     Route: 048
     Dates: start: 20070528, end: 20070612
  2. MYCOPHENOLATE MOFETIL [Suspect]
     Dosage: 1MG DAILY
     Route: 048
     Dates: start: 20070630, end: 20070721
  3. DECORTIN-H [Suspect]
     Indication: HEART TRANSPLANT
     Dosage: 42.5 MG, BID
     Route: 048
     Dates: start: 20070527
  4. TAZOBACTAM [Suspect]
     Indication: BRONCHITIS
     Dosage: 4500 MG, BID
     Route: 042
     Dates: start: 20070529, end: 20070605
  5. VANCOMYCIN [Suspect]
  6. METRONIDAZOLE [Suspect]
  7. NEORAL [Suspect]
     Indication: HEART TRANSPLANT
     Dosage: 325 MG, BID
     Route: 048
     Dates: start: 20070526
  8. LIQUAEMIN INJ [Suspect]
     Indication: THROMBOSIS PROPHYLAXIS
     Dosage: 500 IU, QH
     Route: 042
     Dates: start: 20070723, end: 20070726

REACTIONS (33)
  - ABDOMINAL ADHESIONS [None]
  - ABDOMINAL PAIN [None]
  - ABSCESS [None]
  - ADHESIOLYSIS [None]
  - C-REACTIVE PROTEIN INCREASED [None]
  - CENTRAL VENOUS PRESSURE DECREASED [None]
  - COLECTOMY [None]
  - COLITIS [None]
  - COLOSTOMY [None]
  - COUGH [None]
  - DUODENAL ULCER HAEMORRHAGE [None]
  - DYSPNOEA [None]
  - FLUID RETENTION [None]
  - HAEMOGLOBIN DECREASED [None]
  - ILEUS [None]
  - ILEUS PARALYTIC [None]
  - INFECTION [None]
  - INTESTINAL HAEMORRHAGE [None]
  - LAPAROTOMY [None]
  - LARGE INTESTINAL ULCER [None]
  - LARGE INTESTINAL ULCER HAEMORRHAGE [None]
  - METABOLIC ACIDOSIS [None]
  - MULTI-ORGAN FAILURE [None]
  - OMENTECTOMY [None]
  - PERITONEAL LAVAGE [None]
  - POST PROCEDURAL HAEMORRHAGE [None]
  - REFLUX OESOPHAGITIS [None]
  - RESPIRATORY FAILURE [None]
  - SPLENECTOMY [None]
  - SPLENIC RUPTURE [None]
  - STENOTROPHOMONAS INFECTION [None]
  - SURGERY [None]
  - URINE OUTPUT DECREASED [None]
